FAERS Safety Report 4743464-6 (Version None)
Quarter: 2005Q3

REPORT INFORMATION
  Report Type: 
  Country: None (occurrence: None)
  Receive Date: 20050809
  Receipt Date: 20050725
  Transmission Date: 20060218
  Serious: Yes (Other)
  Sender: FDA-Public Use
  Company Number: ENT 2005-0105

PATIENT
  Age: 69 Year
  Sex: Male

DRUGS (5)
  1. COMTAN [Suspect]
     Indication: PARKINSON'S DISEASE
  2. STALEVO 100 [Suspect]
     Dosage: 300 + 350 MG ORAL
     Route: 048
     Dates: start: 20050715
  3. AMANTADINE [Concomitant]
  4. AKINETON [Concomitant]
  5. SINEMET [Concomitant]

REACTIONS (2)
  - DISTRACTIBILITY [None]
  - HALLUCINATION [None]
